FAERS Safety Report 6059447-2 (Version None)
Quarter: 2009Q1

REPORT INFORMATION
  Report Type: 
  Country: None (occurrence: None)
  Receive Date: 20090130
  Receipt Date: 20090116
  Transmission Date: 20090719
  Serious: Yes (Other)
  Sender: FDA-Public Use
  Company Number: PHHY2009SE01608

PATIENT
  Sex: Female

DRUGS (4)
  1. RITALIN [Suspect]
     Indication: DISTURBANCE IN ATTENTION
     Dosage: 90 MG
  2. RITALIN [Suspect]
     Indication: BIPOLAR II DISORDER
     Dosage: 2 CAP OF 20 MG PER DAY AND 3 TAB OF 10 MG
     Dates: start: 20070101
  3. CONCERTA [Concomitant]
  4. LITHIUM [Concomitant]

REACTIONS (8)
  - ALOPECIA [None]
  - DRUG DEPENDENCE [None]
  - EYE IRRITATION [None]
  - FATIGUE [None]
  - FEELING ABNORMAL [None]
  - HEADACHE [None]
  - OVERDOSE [None]
  - THYROID DISORDER [None]
